FAERS Safety Report 18472748 (Version 1)
Quarter: 2020Q4

REPORT INFORMATION
  Report Type: Spontaneous
  Country: US (occurrence: US)
  Receive Date: 20201105
  Receipt Date: 20201105
  Transmission Date: 20210114
  Serious: No
  Sender: FDA-Public Use
  Company Number: None

PATIENT
  Age: 72 Year
  Sex: Female
  Weight: 73.8 kg

DRUGS (22)
  1. CIPROFLOXACIN. [Concomitant]
     Active Substance: CIPROFLOXACIN
  2. LUBRIFRSH PM [Concomitant]
  3. OMEPRAZOLE. [Concomitant]
     Active Substance: OMEPRAZOLE
  4. ASPIRIN LOW DOSE [Concomitant]
     Active Substance: ASPIRIN
  5. METAMUCIL [Concomitant]
     Active Substance: PLANTAGO SEED
  6. NAPROXEN. [Concomitant]
     Active Substance: NAPROXEN
  7. DIPHENHYDRAMINE. [Concomitant]
     Active Substance: DIPHENHYDRAMINE
  8. LIDOCAINE. [Concomitant]
     Active Substance: LIDOCAINE
  9. OXYCODONE [Concomitant]
     Active Substance: OXYCODONE
  10. TYLENOL [Concomitant]
     Active Substance: ACETAMINOPHEN
  11. ACETAMINOPHEN. [Concomitant]
     Active Substance: ACETAMINOPHEN
  12. FASLODEX [Concomitant]
     Active Substance: FULVESTRANT
  13. FLUTICASONE. [Concomitant]
     Active Substance: FLUTICASONE
  14. ATORVASTATIN [Concomitant]
     Active Substance: ATORVASTATIN
  15. LISINOPRIL. [Concomitant]
     Active Substance: LISINOPRIL
  16. SENNA [Concomitant]
     Active Substance: SENNA LEAF\SENNOSIDES\SENNOSIDES A AND B
  17. SERTRALINE [Concomitant]
     Active Substance: SERTRALINE HYDROCHLORIDE
  18. ZOLEDRONIC ACID [Concomitant]
     Active Substance: ZOLEDRONIC ACID
  19. CAPECITABINE. [Suspect]
     Active Substance: CAPECITABINE
     Indication: BREAST CANCER
     Dosage: ?          OTHER FREQUENCY:BID 7 ON/7 OFF;?
     Route: 048
     Dates: start: 20181107
  20. PEG 3350 [Concomitant]
     Active Substance: POLYETHYLENE GLYCOL 3350
  21. LEVOTHYROXINE. [Concomitant]
     Active Substance: LEVOTHYROXINE
  22. TRAZODONE [Concomitant]
     Active Substance: TRAZODONE HYDROCHLORIDE

REACTIONS (1)
  - Abdominal infection [None]

NARRATIVE: CASE EVENT DATE: 20201105
